FAERS Safety Report 5604414-3 (Version None)
Quarter: 2008Q1

REPORT INFORMATION
  Report Type: 
  Country: None (occurrence: None)
  Receive Date: 20080128
  Receipt Date: 20080117
  Transmission Date: 20080703
  Serious: No
  Sender: FDA-Public Use
  Company Number: US-ELI_LILLY_AND_COMPANY-US200709004461

PATIENT
  Sex: Female
  Weight: 72.562 kg

DRUGS (1)
  1. ZYPREXA [Suspect]
     Indication: MENTAL DISORDER
     Dosage: 20 MG, UNK
     Dates: start: 20030310

REACTIONS (1)
  - DIABETES MELLITUS [None]
